FAERS Safety Report 4483407-6 (Version None)
Quarter: 2004Q4

REPORT INFORMATION
  Report Type: 
  Country: None (occurrence: None)
  Receive Date: 20041020
  Receipt Date: 20041006
  Transmission Date: 20050328
  Serious: Yes (Other)
  Sender: FDA-Public Use
  Company Number: FR_040904774

PATIENT
  Age: 28 Year
  Sex: Male
  Weight: 75 kg

DRUGS (8)
  1. XIGRIS [Suspect]
     Indication: SEPSIS
     Dosage: 24 UG/KG/HR OTHER
     Route: 050
     Dates: start: 20040912, end: 20040916
  2. NORADRENALINE [Concomitant]
  3. DOBUTAMINE [Concomitant]
  4. CLAFORIN (CEFTOTAXIME SODIUM) [Concomitant]
  5. TAVANIC (LEVOFLOXACIN) [Concomitant]
  6. TIBERIAL (ORNIDAZOLE) [Concomitant]
  7. HYPNOEL (MIDAZOLAM HYDROCHLORIDE) [Concomitant]
  8. SUFENTA [Concomitant]

REACTIONS (4)
  - BLOOD FIBRINOGEN INCREASED [None]
  - CONDITION AGGRAVATED [None]
  - PROTHROMBIN LEVEL INCREASED [None]
  - THROMBOCYTOPENIA [None]
